FAERS Safety Report 8237990 (Version 2)
Quarter: 2013Q4

REPORT INFORMATION
  Report Type: Spontaneous
  Country: US (occurrence: US)
  Receive Date: 20111109
  Receipt Date: 20131206
  Transmission Date: 20140711
  Serious: Yes (Hospitalization)
  Sender: FDA-Public Use
  Company Number: US-GLAXOSMITHKLINE-A0915619A

PATIENT
  Age: 67 Year
  Sex: Male
  Weight: 104.1 kg

DRUGS (1)
  1. AVANDIA [Suspect]
     Indication: DIABETES MELLITUS
     Dosage: 2MG TWICE PER DAY
     Route: 048
     Dates: start: 200501, end: 200909

REACTIONS (7)
  - Angina pectoris [Not Recovered/Not Resolved]
  - Coronary artery disease [Unknown]
  - Coronary artery bypass [Unknown]
  - Dyspnoea [Unknown]
  - Chest pain [Unknown]
  - Renal failure [Unknown]
  - Dialysis [Unknown]
